FAERS Safety Report 16659475 (Version 2)
Quarter: 2019Q4

REPORT INFORMATION
  Report Type: Spontaneous
  Country: US (occurrence: US)
  Receive Date: 20190802
  Receipt Date: 20191105
  Transmission Date: 20200122
  Serious: No
  Sender: FDA-Public Use
  Company Number: US-JNJFOC-20190741475

PATIENT
  Age: 30 Year
  Sex: Female
  Weight: 58.11 kg

DRUGS (1)
  1. WOMENS ROGAINE UNSCENTED [Suspect]
     Active Substance: MINOXIDIL
     Indication: ALOPECIA
     Dosage: FULL CAPFUL AT FIRST, AND THEN 2 CAPSFUL AFTER THAT ONCE DAILY, BUT NOT EVERY SINGLE CONSECUTIVE DAY
     Route: 061

REACTIONS (3)
  - Application site pain [Not Recovered/Not Resolved]
  - Overdose [Not Recovered/Not Resolved]
  - Product use in unapproved indication [Not Recovered/Not Resolved]

NARRATIVE: CASE EVENT DATE: 20190727
